FAERS Safety Report 23722401 (Version 3)
Quarter: 2024Q2

REPORT INFORMATION
  Report Type: Spontaneous
  Country: PL (occurrence: PL)
  Receive Date: 20240409
  Receipt Date: 20240429
  Transmission Date: 20240715
  Serious: Yes (Other)
  Sender: FDA-Public Use
  Company Number: PL-002147023-PHHY2019PL133800

PATIENT
  Age: 67 Year
  Sex: Male

DRUGS (7)
  1. CYCLOSPORINE [Suspect]
     Active Substance: CYCLOSPORINE
     Indication: Immunosuppressant drug therapy
     Dosage: UNK
     Route: 065
  2. AZATHIOPRINE [Suspect]
     Active Substance: AZATHIOPRINE
     Indication: Immunosuppressant drug therapy
     Dosage: 100 MG, QD
     Route: 065
     Dates: end: 200907
  3. AZATHIOPRINE [Suspect]
     Active Substance: AZATHIOPRINE
     Dosage: UNK
     Route: 065
  4. PREDNISONE [Suspect]
     Active Substance: PREDNISONE
     Indication: Immunosuppressant drug therapy
     Dosage: UNK
     Route: 065
  5. PREDNISONE [Suspect]
     Active Substance: PREDNISONE
     Dosage: UNK
     Route: 065
  6. MYCOPHENOLATE SODIUM [Suspect]
     Active Substance: MYCOPHENOLATE SODIUM
     Indication: Immunosuppressant drug therapy
     Dosage: 720 MG, ADMINISTERED IN 2 EQUAL DOSES
     Route: 065
  7. MYCOPHENOLATE SODIUM [Suspect]
     Active Substance: MYCOPHENOLATE SODIUM
     Dosage: 720 MG, ADMINISTERED IN 2 EQUAL DOSES
     Route: 065

REACTIONS (3)
  - Colorectal cancer [Recovering/Resolving]
  - Metastases to liver [Recovering/Resolving]
  - Metastases to lung [Recovering/Resolving]

NARRATIVE: CASE EVENT DATE: 20171201
